FAERS Safety Report 6418223-9 (Version None)
Quarter: 2009Q4

REPORT INFORMATION
  Report Type: 
  Country: None (occurrence: None)
  Receive Date: 20091026
  Receipt Date: 20091013
  Transmission Date: 20100525
  Serious: Yes (Death)
  Sender: FDA-Public Use
  Company Number: ADR38692009

PATIENT
  Age: 76 Year
  Sex: Female

DRUGS (3)
  1. SIMVASTATIN [Suspect]
     Dosage: 40 MG, ORAL
     Route: 048
  2. ATENOLOL [Concomitant]
  3. WARFARIN SODIUM [Concomitant]

REACTIONS (3)
  - CEREBRAL HYPERPERFUSION SYNDROME [None]
  - CONDITION AGGRAVATED [None]
  - HAEMORRHAGE INTRACRANIAL [None]
